FAERS Safety Report 7426804-9 (Version None)
Quarter: 2011Q2

REPORT INFORMATION
  Report Type: 
  Country: None (occurrence: None)
  Receive Date: 20110420
  Receipt Date: 20110414
  Transmission Date: 20111010
  Serious: Yes (Hospitalization)
  Sender: FDA-Public Use
  Company Number: BR-MERCK-1104BRA00041

PATIENT
  Age: 69 Year
  Sex: Female
  Weight: 50 kg

DRUGS (8)
  1. OLMESARTAN MEDOXOMIL [Concomitant]
     Route: 065
  2. ISOSORBIDE MONONITRATE [Concomitant]
     Indication: ANTICOAGULANT THERAPY
     Route: 065
  3. MINERALS (UNSPECIFIED) AND VITAMINS (UNSPECIFIED) [Concomitant]
     Route: 065
  4. ALUMINUM HYDROXIDE AND DIMETHICONE AND MAGNESIUM HYDROXIDE [Concomitant]
     Route: 065
  5. SERTRALINE HYDROCHLORIDE [Concomitant]
     Route: 065
  6. ASPIRIN [Concomitant]
     Route: 065
  7. ZOCOR [Suspect]
     Route: 065
  8. OMEPRAZOLE [Concomitant]
     Route: 065

REACTIONS (1)
  - BURNING SENSATION [None]
